FAERS Safety Report 24621472 (Version 2)
Quarter: 2024Q4

REPORT INFORMATION
  Report Type: Spontaneous
  Country: CL (occurrence: CL)
  Receive Date: 20241114
  Receipt Date: 20241218
  Transmission Date: 20250115
  Serious: Yes (Other)
  Sender: BIOMARIN
  Company Number: CL-BIOMARINAP-CL-2024-161518

PATIENT

DRUGS (1)
  1. VOXZOGO [Suspect]
     Active Substance: VOSORITIDE
     Indication: Osteochondrodysplasia
     Dosage: UNK UNK, QD
     Route: 058
     Dates: start: 202211

REACTIONS (5)
  - Kyphosis [Not Recovered/Not Resolved]
  - Scoliosis [Not Recovered/Not Resolved]
  - Spinal stenosis [Unknown]
  - Haemangioma [Unknown]
  - Drug ineffective [Unknown]

NARRATIVE: CASE EVENT DATE: 20241001
